FAERS Safety Report 23235575 (Version 1)
Quarter: 2023Q4

REPORT INFORMATION
  Report Type: Spontaneous
  Country: US (occurrence: US)
  Receive Date: 20231128
  Receipt Date: 20231128
  Transmission Date: 20240110
  Serious: No
  Sender: FDA-Public Use
  Company Number: US-PFIZER INC-202300376443

PATIENT
  Age: 68 Year
  Sex: Female

DRUGS (7)
  1. IBRANCE [Suspect]
     Active Substance: PALBOCICLIB
     Dosage: 100 MG, CYCLIC (1 CAPSULE DAILY BY MOUTH ON DAYS 1 THROUGH 21 EVERY 28 DAYS)
     Dates: start: 202103, end: 202310
  2. ATORVASTATIN CALCIUM [Concomitant]
     Active Substance: ATORVASTATIN CALCIUM
  3. ANASTROZOLE [Concomitant]
     Active Substance: ANASTROZOLE
  4. LEVOTHYROXINE [Concomitant]
     Active Substance: LEVOTHYROXINE
  5. VITAMINS NOS [Concomitant]
     Active Substance: VITAMINS
  6. FAMOTIDINE [Concomitant]
     Active Substance: FAMOTIDINE
  7. IRON [Concomitant]
     Active Substance: IRON

REACTIONS (1)
  - Malaise [Unknown]
